FAERS Safety Report 14688652 (Version 6)
Quarter: 2018Q2

REPORT INFORMATION
  Report Type: Spontaneous
  Country: JP (occurrence: JP)
  Receive Date: 20180328
  Receipt Date: 20180514
  Transmission Date: 20180711
  Serious: Yes (Life-Threatening, Hospitalization)
  Sender: FDA-Public Use
  Company Number: JP-SA-2018SA030571

PATIENT
  Age: 45 Year
  Sex: Male
  Weight: 71.2 kg

DRUGS (1)
  1. FABRAZYME [Suspect]
     Active Substance: AGALSIDASE BETA
     Indication: FABRY^S DISEASE
     Route: 041
     Dates: start: 20180119

REACTIONS (9)
  - Lip oedema [Recovering/Resolving]
  - Ventricular fibrillation [Recovered/Resolved]
  - Blood pressure decreased [Recovered/Resolved]
  - Cardio-respiratory arrest [Unknown]
  - Rhinorrhoea [Recovered/Resolved]
  - Malaise [Recovering/Resolving]
  - Oculogyric crisis [Recovered/Resolved]
  - Pyrexia [Recovering/Resolving]
  - Depressed level of consciousness [Recovered/Resolved]

NARRATIVE: CASE EVENT DATE: 20180201
